FAERS Safety Report 13399197 (Version 2)
Quarter: 2017Q3

REPORT INFORMATION
  Report Type: Other
  Country: CH (occurrence: CH)
  Receive Date: 20170404
  Receipt Date: 20170721
  Transmission Date: 20171127
  Serious: Yes (Hospitalization, Disabling, Other)
  Sender: FDA-Public Use
  Company Number: CH-APOTEX-2017AP009744

PATIENT
  Sex: Male

DRUGS (2)
  1. DIAZEPAM. [Suspect]
     Active Substance: DIAZEPAM
     Indication: DEPRESSION
     Dosage: 2.5 MG, BID
     Route: 064
     Dates: start: 2009
  2. PAXIL [Suspect]
     Active Substance: PAROXETINE HYDROCHLORIDE
     Indication: DEPRESSION
     Dosage: 10 MG, QD
     Route: 064
     Dates: start: 2009

REACTIONS (11)
  - Opisthotonus [Recovering/Resolving]
  - Clonus [Recovering/Resolving]
  - Poor sucking reflex [Recovered/Resolved]
  - Foetal exposure during pregnancy [Recovered/Resolved]
  - Neonatal respiratory distress syndrome [Recovering/Resolving]
  - Dyskinesia [Recovering/Resolving]
  - Hypertonia neonatal [Recovering/Resolving]
  - Hyperreflexia [Recovering/Resolving]
  - Premature baby [Unknown]
  - Perinatal stroke [Unknown]
  - Drug withdrawal syndrome neonatal [Recovering/Resolving]

NARRATIVE: CASE EVENT DATE: 20160801
